FAERS Safety Report 9469408 (Version 4)
Quarter: 2013Q3

REPORT INFORMATION
  Report Type: Spontaneous
  Country: JP (occurrence: JP)
  Receive Date: 20130821
  Receipt Date: 20130906
  Transmission Date: 20140515
  Serious: Yes (Hospitalization)
  Sender: FDA-Public Use
  Company Number: JP-009507513-1308JPN004074

PATIENT
  Age: 49 Year
  Sex: Male

DRUGS (2)
  1. JANUVIA TABLETS 50MG [Suspect]
     Indication: DIABETES MELLITUS
     Dosage: 50 MG, 1/1 DAY
     Route: 048
     Dates: start: 20130712, end: 20130805
  2. SEIBULE [Suspect]
     Indication: DIABETES MELLITUS
     Dosage: 50 MG, TID
     Route: 048
     Dates: start: 20130713, end: 20130805

REACTIONS (1)
  - Ileus [Recovered/Resolved]
